FAERS Safety Report 18870782 (Version 2)
Quarter: 2021Q1

REPORT INFORMATION
  Report Type: Report from Study
  Country: None (occurrence: AU)
  Receive Date: 20210209
  Receipt Date: 20210224
  Transmission Date: 20210420
  Serious: No
  Sender: FDA-Public Use
  Company Number: AU-ABBVIE-21K-008-3757079-00

PATIENT
  Sex: Female

DRUGS (1)
  1. SKYRIZI [Suspect]
     Active Substance: RISANKIZUMAB-RZAA
     Indication: PSORIASIS
     Route: 058
     Dates: end: 202012

REACTIONS (3)
  - Headache [Unknown]
  - Pruritus [Unknown]
  - Arthritis [Not Recovered/Not Resolved]
